FAERS Safety Report 13012507 (Version 3)
Quarter: 2016Q4

REPORT INFORMATION
  Report Type: Spontaneous
  Country: US (occurrence: US)
  Receive Date: 20161209
  Receipt Date: 20161223
  Transmission Date: 20170207
  Serious: No
  Sender: FDA-Public Use
  Company Number: US-HORIZON-PEN-0558-2016

PATIENT
  Age: 79 Year
  Sex: Female

DRUGS (2)
  1. MOBIC [Concomitant]
     Active Substance: MELOXICAM
  2. PENNSAID [Suspect]
     Active Substance: DICLOFENAC SODIUM
     Indication: ARTHRITIS
     Dosage: ONE AND ONLY DOSE
     Dates: start: 20161129, end: 20161129

REACTIONS (3)
  - Application site burn [Recovered/Resolved]
  - Application site erythema [Recovered/Resolved]
  - Administration site warmth [Recovered/Resolved]

NARRATIVE: CASE EVENT DATE: 20161129
